FAERS Safety Report 7831312-7 (Version None)
Quarter: 2011Q4

REPORT INFORMATION
  Report Type: 
  Country: None (occurrence: None)
  Receive Date: 20111021
  Receipt Date: 20111019
  Transmission Date: 20120403
  Serious: Yes (Hospitalization, Disabling, Other)
  Sender: FDA-Public Use
  Company Number: US-MERCK-1106USA02740

PATIENT
  Age: 65 Year
  Sex: Female
  Weight: 72 kg

DRUGS (5)
  1. FOSAMAX [Suspect]
     Indication: OSTEOPOROSIS
     Route: 048
     Dates: start: 20000101
  2. ETOLAC (ETODOLAC) [Concomitant]
     Route: 065
  3. FOSAMAX [Suspect]
     Route: 048
     Dates: start: 20050101, end: 20100301
  4. FOSAMAX [Suspect]
     Route: 048
     Dates: start: 20000101
  5. METHOTREXATE [Concomitant]
     Route: 065

REACTIONS (21)
  - ULNA FRACTURE [None]
  - PARAESTHESIA [None]
  - SPINAL CORD COMPRESSION [None]
  - KYPHOSIS [None]
  - ARTHROPATHY [None]
  - LOW TURNOVER OSTEOPATHY [None]
  - SINUS DISORDER [None]
  - HYPOAESTHESIA [None]
  - NON-HODGKIN'S LYMPHOMA [None]
  - ANAEMIA POSTOPERATIVE [None]
  - BODY HEIGHT DECREASED [None]
  - FEMUR FRACTURE [None]
  - ADVERSE EVENT [None]
  - JOINT CONTRACTURE [None]
  - UTERINE DISORDER [None]
  - SPINAL DEFORMITY [None]
  - BONE DENSITY DECREASED [None]
  - DEPRESSION [None]
  - LOBAR PNEUMONIA [None]
  - HYPERLIPIDAEMIA [None]
  - FOOT FRACTURE [None]
